FAERS Safety Report 4759797-3 (Version None)
Quarter: 2005Q3

REPORT INFORMATION
  Report Type: 
  Country: None (occurrence: None)
  Receive Date: 20050831
  Receipt Date: 20050831
  Transmission Date: 20060218
  Serious: Yes (Other)
  Sender: FDA-Public Use
  Company Number: None

PATIENT
  Age: 58 Year
  Sex: Female
  Weight: 99.7913 kg

DRUGS (2)
  1. SEROQUEL [Suspect]
     Indication: POST-TRAUMATIC STRESS DISORDER
     Dosage: SEE IMAGE
     Route: 048
     Dates: start: 20050712, end: 20050713
  2. VICODIN [Suspect]
     Indication: DRUG DEPENDENCE
     Dosage: 10/325 BID X 48 HOURS
     Dates: start: 20050712, end: 20050714

REACTIONS (4)
  - BLOOD PRESSURE INCREASED [None]
  - MUSCLE SPASMS [None]
  - PSYCHOMOTOR HYPERACTIVITY [None]
  - RESTLESSNESS [None]
